FAERS Safety Report 5253619-2 (Version None)
Quarter: 2007Q1

REPORT INFORMATION
  Report Type: 
  Country: None (occurrence: None)
  Receive Date: 20070301
  Receipt Date: 20070220
  Transmission Date: 20070707
  Serious: Yes (Other)
  Sender: FDA-Public Use
  Company Number: GB-PFIZER INC-2007010735

PATIENT
  Age: 45 Year
  Sex: Male
  Weight: 91 kg

DRUGS (1)
  1. CHAMPIX [Suspect]
     Indication: SMOKING CESSATION THERAPY

REACTIONS (4)
  - PHARYNGOLARYNGEAL PAIN [None]
  - SLEEP DISORDER [None]
  - SWOLLEN TONGUE [None]
  - VIRAL INFECTION [None]
